FAERS Safety Report 5670344-4 (Version None)
Quarter: 2008Q1

REPORT INFORMATION
  Report Type: 
  Country: None (occurrence: None)
  Receive Date: 20080314
  Receipt Date: 20080314
  Transmission Date: 20080703
  Serious: Yes (Life-Threatening, Hospitalization)
  Sender: FDA-Public Use
  Company Number: None

PATIENT
  Age: 46 Year
  Sex: Male
  Weight: 78.4723 kg

DRUGS (1)
  1. LYRICA [Suspect]
     Indication: FIBROMYALGIA
     Dosage: 1 TAB AT BED TIME PO
     Route: 048
     Dates: start: 20071118, end: 20071231

REACTIONS (4)
  - ABNORMAL BEHAVIOUR [None]
  - OVERDOSE [None]
  - POISONING [None]
  - THINKING ABNORMAL [None]
